FAERS Safety Report 5627144-0 (Version None)
Quarter: 2008Q1

REPORT INFORMATION
  Report Type: 
  Country: None (occurrence: None)
  Receive Date: 20080211
  Receipt Date: 20080211
  Transmission Date: 20080703
  Serious: No
  Sender: FDA-Public Use
  Company Number: None

PATIENT
  Sex: Female
  Weight: 37.195 kg

DRUGS (3)
  1. HEPARIN [Suspect]
     Indication: ANTICOAGULANT THERAPY
     Dosage: 1000U ONCE IV BOLUS
     Route: 040
     Dates: start: 20080117, end: 20080117
  2. HEPARIN [Suspect]
     Indication: LOW DENSITY LIPOPROTEIN APHERESIS
     Dosage: 1000U ONCE IV BOLUS
     Route: 040
     Dates: start: 20080117, end: 20080117
  3. LDL-APHERESIS PRODUCTS [Concomitant]

REACTIONS (6)
  - AGITATION [None]
  - FACIAL PAIN [None]
  - HEART RATE INCREASED [None]
  - NAUSEA [None]
  - PHARMACEUTICAL PRODUCT COMPLAINT [None]
  - VOMITING [None]
